FAERS Safety Report 12167930 (Version 1)
Quarter: 2016Q1

REPORT INFORMATION
  Report Type: Spontaneous
  Country: JP (occurrence: JP)
  Receive Date: 20160310
  Receipt Date: 20160310
  Transmission Date: 20160526
  Serious: Yes (Other)
  Sender: FDA-Public Use
  Company Number: JP-PFIZER INC-2016139565

PATIENT
  Age: 70 Year
  Sex: Male

DRUGS (6)
  1. INLYTA [Suspect]
     Active Substance: AXITINIB
     Dosage: 8 MG, DAILY
     Route: 048
     Dates: start: 201411
  2. INLYTA [Suspect]
     Active Substance: AXITINIB
     Dosage: 6 MG, CYCLIC (11 DAYS ON/3 DAYS OFF)
     Route: 048
     Dates: start: 201505
  3. INLYTA [Suspect]
     Active Substance: AXITINIB
     Dosage: 6 MG, CYCLIC (12 DAYS ON/2 DAYS OFF)
     Route: 048
     Dates: start: 201307
  4. INLYTA [Suspect]
     Active Substance: AXITINIB
     Indication: RENAL CELL CARCINOMA
     Dosage: 10 MG, DAILY
     Route: 048
     Dates: start: 201212
  5. INLYTA [Suspect]
     Active Substance: AXITINIB
     Dosage: 8 MG, DAILY
     Route: 048
     Dates: start: 201303
  6. INLYTA [Suspect]
     Active Substance: AXITINIB
     Dosage: 6 MG, CYCLIC (11 DAYS ON, 3 DAYS OFF)
     Route: 048
     Dates: start: 201312

REACTIONS (6)
  - Renal impairment [Unknown]
  - Hypothyroidism [Unknown]
  - Diarrhoea [Unknown]
  - Angina unstable [Unknown]
  - Rash [Unknown]
  - Hypertension [Unknown]

NARRATIVE: CASE EVENT DATE: 201303
